FAERS Safety Report 8351275-8 (Version None)
Quarter: 2012Q2

REPORT INFORMATION
  Report Type: 
  Country: None (occurrence: None)
  Receive Date: 20120510
  Receipt Date: 20120430
  Transmission Date: 20120825
  Serious: Yes (Hospitalization)
  Sender: FDA-Public Use
  Company Number: PH-BAXTER-2012BAX003570

PATIENT
  Sex: Female
  Weight: 16.7 kg

DRUGS (2)
  1. ASPIRIN [Concomitant]
     Route: 048
  2. KIOVIG [Suspect]
     Route: 041
     Dates: start: 20120419, end: 20120420

REACTIONS (4)
  - PYREXIA [None]
  - ARTHRALGIA [None]
  - HEADACHE [None]
  - CHILLS [None]
